FAERS Safety Report 21487911 (Version 1)
Quarter: 2022Q4

REPORT INFORMATION
  Report Type: Spontaneous
  Country: GB (occurrence: None)
  Receive Date: 20221020
  Receipt Date: 20221020
  Transmission Date: 20230113
  Serious: Yes (Other)
  Sender: FDA-Public Use
  Company Number: GB-MHRA-MED-202210091031076300-JFLBK

PATIENT
  Age: 37 Year
  Sex: Male
  Weight: 101 kg

DRUGS (2)
  1. RABEPRAZOLE [Suspect]
     Active Substance: RABEPRAZOLE
     Indication: Barrett^s oesophagus
     Route: 048
     Dates: start: 20221001, end: 20221004
  2. VALSARTAN [Concomitant]
     Active Substance: VALSARTAN
     Indication: Hypertension
     Dosage: DOSE AND FREQUENCY UNKNOWN
     Dates: start: 20140101

REACTIONS (1)
  - Tinnitus [Not Recovered/Not Resolved]

NARRATIVE: CASE EVENT DATE: 20221002
